FAERS Safety Report 7907081-9 (Version None)
Quarter: 2011Q4

REPORT INFORMATION
  Report Type: 
  Country: None (occurrence: None)
  Receive Date: 20111110
  Receipt Date: 20110822
  Transmission Date: 20120403
  Serious: No
  Sender: FDA-Public Use
  Company Number: US-ASTRAZENECA-2011SE50571

PATIENT
  Age: 60 Year
  Sex: Female
  Weight: 122.9 kg

DRUGS (10)
  1. LANCETS [Concomitant]
  2. NIACIN [Concomitant]
  3. PLAVIX [Concomitant]
  4. GLIPIZIDE [Concomitant]
  5. CRESTOR [Suspect]
     Route: 048
  6. GLARGINE INSULIN [Concomitant]
  7. NEURONTIN [Concomitant]
  8. OTC PAIN MEDICATION [Concomitant]
  9. LISINOPRIL [Suspect]
     Route: 048
  10. METFORMIN HCL [Concomitant]

REACTIONS (1)
  - URINARY TRACT INFECTION [None]
